FAERS Safety Report 9528883 (Version 2)
Quarter: 2013Q4

REPORT INFORMATION
  Report Type: Report from Study
  Country: KR (occurrence: KR)
  Receive Date: 20130917
  Receipt Date: 20131010
  Transmission Date: 20140711
  Serious: Yes (Death)
  Sender: FDA-Public Use
  Company Number: KR-ASTRAZENECA-2013SE69446

PATIENT
  Sex: 0

DRUGS (2)
  1. OMEPRAZOLE [Suspect]
     Route: 048
  2. CLOPIDOGREL [Suspect]

REACTIONS (1)
  - Cardiac death [Fatal]
